FAERS Safety Report 13144658 (Version 1)
Quarter: 2017Q1

REPORT INFORMATION
  Report Type: Spontaneous
  Country: US (occurrence: US)
  Receive Date: 20170124
  Receipt Date: 20170124
  Transmission Date: 20170428
  Serious: No
  Sender: FDA-Public Use
  Company Number: US-AMGEN-USASP2017011065

PATIENT
  Sex: Female

DRUGS (1)
  1. ENBREL [Suspect]
     Active Substance: ETANERCEPT
     Indication: PSORIATIC ARTHROPATHY
     Dosage: 25 MG, 2 TIMES/WK
     Route: 058

REACTIONS (5)
  - Onychoclasis [Unknown]
  - Injection site mass [Unknown]
  - Injection site pain [Unknown]
  - Onychomycosis [Unknown]
  - Candida infection [Unknown]

NARRATIVE: CASE EVENT DATE: 2016
